FAERS Safety Report 12737020 (Version 1)
Quarter: 2016Q3

REPORT INFORMATION
  Report Type: Spontaneous
  Country: US (occurrence: US)
  Receive Date: 20160913
  Receipt Date: 20160913
  Transmission Date: 20161109
  Serious: Yes (Hospitalization)
  Sender: FDA-Public Use
  Company Number: US-B.I. PHARMACEUTICALS,INC./RIDGEFIELD-2016-BI-58503BP

PATIENT
  Age: 75 Year
  Sex: Female

DRUGS (1)
  1. ZANTAC [Suspect]
     Active Substance: RANITIDINE HYDROCHLORIDE
     Indication: GASTRIC ULCER
     Dosage: 300 MG
     Route: 048
     Dates: start: 2005

REACTIONS (4)
  - Rash generalised [Unknown]
  - Gastrointestinal infection [Unknown]
  - Cerebrovascular accident [Unknown]
  - Vena cava filter insertion [Unknown]

NARRATIVE: CASE EVENT DATE: 201608
